FAERS Safety Report 6346711-2 (Version None)
Quarter: 2009Q3

REPORT INFORMATION
  Report Type: 
  Country: None (occurrence: None)
  Receive Date: 20090904
  Receipt Date: 20090825
  Transmission Date: 20100115
  Serious: Yes (Hospitalization)
  Sender: FDA-Public Use
  Company Number: 2009AL005666

PATIENT
  Age: 40 Year
  Sex: Male
  Weight: 110 kg

DRUGS (25)
  1. CITALOPRAM HYDROBROMIDE [Suspect]
     Indication: NON-HODGKIN'S LYMPHOMA
     Dates: start: 20010101, end: 20070501
  2. DIAZEPAM TAB [Suspect]
     Indication: NON-HODGKIN'S LYMPHOMA
     Dates: end: 20070101
  3. IMOVANE [Concomitant]
  4. LAMICTAL [Concomitant]
  5. PINEX FORTE [Concomitant]
  6. TEGRETOL [Concomitant]
  7. VIOXX [Concomitant]
  8. ATACAND HCT [Concomitant]
  9. SIMVASTATIN [Concomitant]
  10. LIPITOR [Concomitant]
  11. ARTHROTEC [Concomitant]
  12. RELIFEX [Concomitant]
  13. LANSOPRAZOLE [Concomitant]
  14. AMARYL [Concomitant]
  15. NORVASC [Concomitant]
  16. AMLODIPINE [Concomitant]
  17. CELEBRA [Concomitant]
  18. APROVEL [Concomitant]
  19. ACETAMINOPHEN [Concomitant]
  20. CREON [Concomitant]
  21. IBUX [Concomitant]
  22. IMODIUM [Concomitant]
  23. ZOLOFT [Concomitant]
  24. MIANSERIN [Concomitant]
  25. CREON [Concomitant]

REACTIONS (14)
  - ALANINE AMINOTRANSFERASE INCREASED [None]
  - DIARRHOEA [None]
  - HYPERHIDROSIS [None]
  - HYPERVENTILATION [None]
  - MYALGIA [None]
  - NAUSEA [None]
  - NERVOUSNESS [None]
  - NIGHTMARE [None]
  - PSYCHOTIC DISORDER [None]
  - SLEEP DISORDER [None]
  - SLEEP TALKING [None]
  - TINNITUS [None]
  - VOMITING [None]
  - WEIGHT INCREASED [None]
